FAERS Safety Report 7988264-9 (Version None)
Quarter: 2011Q4

REPORT INFORMATION
  Report Type: 
  Country: None (occurrence: None)
  Receive Date: 20111216
  Receipt Date: 20110706
  Transmission Date: 20120403
  Serious: No
  Sender: FDA-Public Use
  Company Number: US-ABBOTT-11P-163-0837704-00

PATIENT
  Sex: Female
  Weight: 76.272 kg

DRUGS (1)
  1. PROMETRIUM [Suspect]
     Indication: MENOPAUSE
     Route: 048
     Dates: start: 20110101, end: 20110630

REACTIONS (1)
  - ALOPECIA [None]
